FAERS Safety Report 18062508 (Version 2)
Quarter: 2020Q3

REPORT INFORMATION
  Report Type: Report from Study
  Country: CA (occurrence: CA)
  Receive Date: 20200724
  Receipt Date: 20200916
  Transmission Date: 20201103
  Serious: Yes (Other)
  Sender: FDA-Public Use
  Company Number: CA-BIOGEN-2020BI00896438

PATIENT
  Sex: Female

DRUGS (2)
  1. TYSABRI [Suspect]
     Active Substance: NATALIZUMAB
     Dosage: INFUSED OVER ONE HOUR
     Route: 042
     Dates: start: 20090826
  2. TYSABRI [Suspect]
     Active Substance: NATALIZUMAB
     Indication: MULTIPLE SCLEROSIS
     Dosage: INFUSED OVER ONE HOUR
     Route: 042
     Dates: start: 20090826

REACTIONS (11)
  - Prescribed underdose [Unknown]
  - Discomfort [Unknown]
  - Asthenia [Unknown]
  - Myelitis [Unknown]
  - Burning sensation [Not Recovered/Not Resolved]
  - Back pain [Not Recovered/Not Resolved]
  - Tinnitus [Unknown]
  - Tension headache [Unknown]
  - Skin tightness [Unknown]
  - Poor quality sleep [Not Recovered/Not Resolved]
  - Muscle tightness [Unknown]

NARRATIVE: CASE EVENT DATE: 2010
